FAERS Safety Report 7620055-0 (Version None)
Quarter: 2011Q3

REPORT INFORMATION
  Report Type: 
  Country: None (occurrence: None)
  Receive Date: 20110719
  Receipt Date: 20110715
  Transmission Date: 20111222
  Serious: No
  Sender: FDA-Public Use
  Company Number: US-PFIZER INC-2011161128

PATIENT
  Sex: Male
  Weight: 112.47 kg

DRUGS (5)
  1. COSAMIN DS [Concomitant]
     Indication: ARTHRITIS
     Dosage: 2 DF, 1X/DAY
  2. ZINC [Concomitant]
     Indication: MUSCLE SPASMS
     Dosage: UNK
     Route: 048
  3. FUROSEMIDE [Concomitant]
     Indication: LIVER DISORDER
     Dosage: 40 MG, EVERY OTHER DAY
  4. VIAGRA [Suspect]
     Indication: ERECTILE DYSFUNCTION
     Dosage: 50 MG, AS NEEDED
     Route: 048
     Dates: start: 20101101, end: 20110201
  5. SPIRONOLACTONE [Concomitant]
     Indication: LIVER DISORDER
     Dosage: 50 MG, EVERY OTHER DAY

REACTIONS (1)
  - DRUG INEFFECTIVE [None]
